FAERS Safety Report 18028214 (Version 2)
Quarter: 2020Q3

REPORT INFORMATION
  Report Type: Spontaneous
  Country: JP (occurrence: JP)
  Receive Date: 20200715
  Receipt Date: 20200722
  Transmission Date: 20201103
  Serious: Yes (Other)
  Sender: FDA-Public Use
  Company Number: JP-PFIZER INC-2020269407

PATIENT
  Age: 63 Year
  Sex: Male

DRUGS (2)
  1. CISPLATIN. [Suspect]
     Active Substance: CISPLATIN
     Indication: LUNG ADENOCARCINOMA STAGE III
     Dosage: CYCLIC
     Dates: start: 201805, end: 2018
  2. DOCETAXEL. [Suspect]
     Active Substance: DOCETAXEL
     Indication: LUNG ADENOCARCINOMA STAGE III
     Dosage: CYCLIC
     Dates: start: 201805, end: 2018

REACTIONS (1)
  - Lung abscess [Unknown]

NARRATIVE: CASE EVENT DATE: 2018
